FAERS Safety Report 19830461 (Version 2)
Quarter: 2021Q4

REPORT INFORMATION
  Report Type: Spontaneous
  Country: CZ (occurrence: CZ)
  Receive Date: 20210915
  Receipt Date: 20211008
  Transmission Date: 20220304
  Serious: No
  Sender: FDA-Public Use
  Company Number: CZ-SAMIL-GLO2021CZ006858

PATIENT
  Age: 55 Year
  Sex: Female
  Weight: 115 kg

DRUGS (24)
  1. AZATHIOPRINE [Suspect]
     Active Substance: AZATHIOPRINE
     Indication: Ulcer
     Route: 065
     Dates: start: 2018
  2. AZATHIOPRINE [Suspect]
     Active Substance: AZATHIOPRINE
     Indication: Immunosuppressant drug therapy
     Dosage: RESTARTED
     Route: 065
     Dates: start: 2018
  3. HYDROGEN PEROXIDE [Concomitant]
     Active Substance: HYDROGEN PEROXIDE
     Indication: Ulcer
     Route: 061
     Dates: start: 2017
  4. BETADINE [Concomitant]
     Active Substance: POVIDONE-IODINE
     Indication: Ulcer
     Route: 061
     Dates: start: 2017
  5. ESOMEPRAZOLE. [Concomitant]
     Active Substance: ESOMEPRAZOLE MAGNESIUM
     Indication: Product used for unknown indication
     Dates: start: 2017
  6. DIOSMIN\HESPERIDIN [Concomitant]
     Active Substance: DIOSMIN\HESPERIDIN
     Indication: Product used for unknown indication
     Dates: start: 2017
  7. BISOPROLOL [Concomitant]
     Active Substance: BISOPROLOL
     Indication: Product used for unknown indication
     Dates: start: 2017
  8. ATORVASTATIN [Concomitant]
     Active Substance: ATORVASTATIN
     Indication: Product used for unknown indication
     Dates: start: 2017
  9. PERINDOPRIL [Concomitant]
     Active Substance: PERINDOPRIL
     Indication: Product used for unknown indication
     Dates: start: 2017
  10. GLICLAZIDE [Concomitant]
     Active Substance: GLICLAZIDE
     Indication: Product used for unknown indication
     Dates: start: 2017
  11. EMPAGLIFLOZIN [Concomitant]
     Active Substance: EMPAGLIFLOZIN
     Indication: Product used for unknown indication
     Dates: start: 2017
  12. METFORMIN [Concomitant]
     Active Substance: METFORMIN HYDROCHLORIDE
     Indication: Product used for unknown indication
     Dates: start: 2017
  13. WARFARIN [Concomitant]
     Active Substance: WARFARIN
     Indication: Product used for unknown indication
     Dates: start: 2017
  14. AMPICILLIN [Concomitant]
     Active Substance: AMPICILLIN
     Indication: Ulcer
     Dates: start: 2018
  15. OXACILLIN [Concomitant]
     Active Substance: OXACILLIN SODIUM
     Indication: Ulcer
     Dates: start: 2018
  16. CLINDAMYCIN [Concomitant]
     Active Substance: CLINDAMYCIN
     Indication: Ulcer
     Dates: start: 2018
  17. CLINDAMYCIN [Concomitant]
     Active Substance: CLINDAMYCIN
     Indication: Staphylococcal infection
  18. CIPROFLOXACIN [Concomitant]
     Active Substance: CIPROFLOXACIN
     Indication: Ulcer
     Dates: start: 2018
  19. CEFAZOLIN [Concomitant]
     Active Substance: CEFAZOLIN
     Indication: Ulcer
     Dosage: ANTIBIOTIC THERAPY WAS GIVEN FOR SEVEN DAYS
     Dates: start: 201805
  20. METHYLPREDNISOLONE [Concomitant]
     Active Substance: METHYLPREDNISOLONE
     Indication: Ulcer
     Route: 042
     Dates: start: 201805
  21. METHYLPREDNISOLONE [Concomitant]
     Active Substance: METHYLPREDNISOLONE
     Route: 048
     Dates: start: 201805
  22. METHYLPREDNISOLONE [Concomitant]
     Active Substance: METHYLPREDNISOLONE
     Dosage: AT A DAILY DOSE OF 16 MG, I.E. 0.15 MG/KG/DAY.
     Route: 048
     Dates: start: 201808
  23. METHYLPREDNISOLONE [Concomitant]
     Active Substance: METHYLPREDNISOLONE
     Dosage: THREE TIMES IN TOTAL
     Route: 048
     Dates: start: 201808
  24. METHYLPREDNISOLONE [Concomitant]
     Active Substance: METHYLPREDNISOLONE
     Route: 048
     Dates: start: 201805

REACTIONS (1)
  - Drug ineffective [Unknown]
